FAERS Safety Report 22049452 (Version 1)
Quarter: 2023Q1

REPORT INFORMATION
  Report Type: Spontaneous
  Country: CA (occurrence: CA)
  Receive Date: 20230301
  Receipt Date: 20230301
  Transmission Date: 20230418
  Serious: Yes (Life-Threatening, Hospitalization, Other)
  Sender: FDA-Public Use
  Company Number: CA-PFIZER INC-202300082966

PATIENT
  Age: 70 Year
  Sex: Female
  Weight: 74 kg

DRUGS (23)
  1. ALDACTONE [Suspect]
     Active Substance: SPIRONOLACTONE
     Indication: Tricuspid valve incompetence
     Dosage: 50 MG, 1X/DAY
     Route: 048
  2. ALDACTONE [Suspect]
     Active Substance: SPIRONOLACTONE
     Dosage: 25 MG, 1X/DAY
     Route: 048
  3. PERINDOPRIL ERBUMINE [Suspect]
     Active Substance: PERINDOPRIL ERBUMINE
     Indication: Atrial fibrillation
     Dosage: 4 MG
     Route: 048
  4. PERINDOPRIL ERBUMINE [Suspect]
     Active Substance: PERINDOPRIL ERBUMINE
     Dosage: 8 MG, 1X/DAY
     Route: 048
  5. ACETAMINOPHEN [Concomitant]
     Active Substance: ACETAMINOPHEN
  6. DIGOXIN [Concomitant]
     Active Substance: DIGOXIN
  7. FERROUS GLUCONATE [Concomitant]
     Active Substance: FERROUS GLUCONATE
  8. DAPAGLIFLOZIN [Concomitant]
     Active Substance: DAPAGLIFLOZIN
  9. FUROSEMIDE [Concomitant]
     Active Substance: FUROSEMIDE
     Route: 065
  10. HEPARIN SODIUM [Concomitant]
     Active Substance: HEPARIN SODIUM
  11. HUMALOG [Concomitant]
     Active Substance: INSULIN LISPRO
  12. INSULIN GLARGINE [Concomitant]
     Active Substance: INSULIN GLARGINE
  13. MAGNESIUM [Concomitant]
     Active Substance: MAGNESIUM
  14. METOPROLOL [Concomitant]
     Active Substance: METOPROLOL
     Route: 065
  15. MONOFERRIC [Concomitant]
     Active Substance: FERRIC DERISOMALTOSE
  16. PANTOPRAZOLE [Concomitant]
     Active Substance: PANTOPRAZOLE
  17. PAROXETINE [Concomitant]
     Active Substance: PAROXETINE
  18. POLYETHYLENE GLYCOLS [Concomitant]
     Active Substance: POLYETHYLENE GLYCOLS
  19. PREGABALIN [Concomitant]
     Active Substance: PREGABALIN
  20. RIVAROXABAN [Concomitant]
     Active Substance: RIVAROXABAN
     Route: 065
  21. ALBUTEROL [Concomitant]
     Active Substance: ALBUTEROL
  22. SENNOSIDES [Concomitant]
     Active Substance: SENNOSIDES
  23. SIMVASTATIN [Concomitant]
     Active Substance: SIMVASTATIN

REACTIONS (2)
  - Acute kidney injury [Not Recovered/Not Resolved]
  - Hyperkalaemia [Not Recovered/Not Resolved]
